FAERS Safety Report 26130211 (Version 1)
Quarter: 2025Q4

REPORT INFORMATION
  Report Type: Spontaneous
  Country: CN (occurrence: CN)
  Receive Date: 20251208
  Receipt Date: 20251208
  Transmission Date: 20260119
  Serious: Yes (Hospitalization, Other)
  Sender: RISING PHARMACEUTICALS
  Company Number: CN-RISINGPHARMA-CN-2025RISLIT00619

PATIENT
  Age: 82 Year
  Sex: Female
  Weight: 49 kg

DRUGS (3)
  1. LINEZOLID [Suspect]
     Active Substance: LINEZOLID
     Indication: Anti-infective therapy
     Dosage: INITIATED ON  DAY 10
     Route: 065
  2. CEFOPERAZONE SODIUM\SULBACTAM [Concomitant]
     Active Substance: CEFOPERAZONE SODIUM\SULBACTAM
     Route: 065
  3. TIGECYCLINE [Concomitant]
     Active Substance: TIGECYCLINE
     Route: 065

REACTIONS (4)
  - Mitochondrial toxicity [Unknown]
  - Toxicity to various agents [Unknown]
  - Hyperlactacidaemia [Unknown]
  - Metabolic alkalosis [Unknown]
